FAERS Safety Report 6568193-8 (Version None)
Quarter: 2010Q1

REPORT INFORMATION
  Report Type: 
  Country: None (occurrence: None)
  Receive Date: 20100203
  Receipt Date: 20100125
  Transmission Date: 20100710
  Serious: Yes (Death)
  Sender: FDA-Public Use
  Company Number: GB-ROCHE-681168

PATIENT
  Age: 40 Year
  Sex: Female

DRUGS (2)
  1. HERCEPTIN [Suspect]
     Indication: DRUG USE FOR UNKNOWN INDICATION
     Dosage: ADJUVANT
     Route: 065
  2. HERCEPTIN [Suspect]
     Dosage: PATIENT RECEIVED TWO LOADING DOSES
     Route: 065

REACTIONS (1)
  - DEATH [None]
